FAERS Safety Report 25741756 (Version 1)
Quarter: 2025Q3

REPORT INFORMATION
  Report Type: Report from Study
  Country: US (occurrence: None)
  Receive Date: 20250829
  Receipt Date: 20250829
  Transmission Date: 20251020
  Serious: Yes (Other)
  Sender: ALEXION PHARMACEUTICALS
  Company Number: US-ASTRAZENECA-202508USA023305US

PATIENT
  Age: 69 Year
  Sex: Female

DRUGS (2)
  1. BENRALIZUMAB [Suspect]
     Active Substance: BENRALIZUMAB
     Indication: Asthma
  2. BENRALIZUMAB [Suspect]
     Active Substance: BENRALIZUMAB

REACTIONS (5)
  - Cataract [Unknown]
  - Candida infection [Unknown]
  - Glossitis [Unknown]
  - Dental caries [Unknown]
  - Burning mouth syndrome [Unknown]

NARRATIVE: CASE EVENT DATE: 20250704
